FAERS Safety Report 9099155 (Version 2)
Quarter: 2013Q1

REPORT INFORMATION
  Report Type: Spontaneous
  Country: CA (occurrence: CA)
  Receive Date: 20130214
  Receipt Date: 20130225
  Transmission Date: 20140127
  Serious: Yes (Hospitalization, Other)
  Sender: FDA-Public Use
  Company Number: CA-009507513-1301CAN014667

PATIENT
  Age: 66 Year
  Sex: Female
  Weight: 102.4 kg

DRUGS (3)
  1. CLARITIN [Suspect]
     Indication: URTICARIA
     Dosage: UNK
     Route: 065
     Dates: start: 20130112
  2. L-THYROXIN [Concomitant]
     Indication: THYROID DISORDER
  3. CELEBREX [Concomitant]

REACTIONS (2)
  - Anaphylactic reaction [Recovered/Resolved]
  - Asthma [Recovered/Resolved]
